FAERS Safety Report 13007692 (Version 1)
Quarter: 2016Q4

REPORT INFORMATION
  Report Type: Spontaneous
  Country: DE (occurrence: DE)
  Receive Date: 20161207
  Receipt Date: 20161207
  Transmission Date: 20170207
  Serious: Yes (Other)
  Sender: FDA-Public Use
  Company Number: DE-BAYER-2016-214740

PATIENT
  Age: 16 Year
  Sex: Female

DRUGS (3)
  1. YAZ [Suspect]
     Active Substance: DROSPIRENONE\ETHINYL ESTRADIOL
     Indication: ACNE
     Dosage: 1 DF, QD
     Route: 048
     Dates: end: 20161104
  2. MOVICOL [Concomitant]
     Active Substance: POLYETHYLENE GLYCOL 3350\POTASSIUM CHLORIDE\SODIUM BICARBONATE\SODIUM CHLORIDE
  3. EUTHYROX [Concomitant]
     Active Substance: LEVOTHYROXINE SODIUM

REACTIONS (12)
  - Nausea [None]
  - Weight increased [None]
  - Dyspnoea [None]
  - Abdominal pain [None]
  - Pulmonary embolism [None]
  - Cardiogenic shock [None]
  - Hyperglycaemia [None]
  - Mobility decreased [None]
  - Circulatory collapse [None]
  - Deep vein thrombosis [None]
  - Off label use [None]
  - Haematoma [None]

NARRATIVE: CASE EVENT DATE: 20161104
